FAERS Safety Report 19053234 (Version 1)
Quarter: 2021Q1

REPORT INFORMATION
  Report Type: Spontaneous
  Country: US (occurrence: US)
  Receive Date: 20210325
  Receipt Date: 20210325
  Transmission Date: 20210420
  Serious: No
  Sender: FDA-Public Use
  Company Number: US-JNJFOC-20210327722

PATIENT

DRUGS (2)
  1. TYLENOL [Suspect]
     Active Substance: ACETAMINOPHEN
     Indication: BACK PAIN
     Route: 065
     Dates: start: 2021
  2. COVID?19 VACCINE [Concomitant]
     Indication: PROPHYLAXIS
     Route: 065
     Dates: start: 2021

REACTIONS (3)
  - Heart rate increased [Unknown]
  - Pain [Unknown]
  - Headache [Unknown]
